FAERS Safety Report 10168686 (Version 1)
Quarter: 2014Q2

REPORT INFORMATION
  Report Type: Report from Study
  Country: CA (occurrence: CA)
  Receive Date: 20140513
  Receipt Date: 20140513
  Transmission Date: 20141212
  Serious: Yes (Hospitalization)
  Sender: FDA-Public Use
  Company Number: CA-009507513-1405CAN005466

PATIENT
  Age: 63 Year
  Sex: Female

DRUGS (12)
  1. SINEMET [Suspect]
     Route: 048
  2. ABILIFY [Suspect]
  3. ADVAIR DISKUS [Suspect]
     Dosage: 1 DF, BID
     Route: 055
  4. ATORVASTATIN CALCIUM [Concomitant]
  5. BISOPROLOL [Concomitant]
  6. LITHIUM [Concomitant]
  7. METFORMIN [Concomitant]
  8. OMEPRAZOLE [Concomitant]
  9. SEROQUEL [Concomitant]
  10. TELMISARTAN [Concomitant]
  11. VENTOLIN (ALBUTEROL) [Concomitant]
  12. VITAMIN D (UNSPECIFIED) [Concomitant]

REACTIONS (12)
  - Asthma [Unknown]
  - Bronchitis [Unknown]
  - Cough [Unknown]
  - Panic attack [Unknown]
  - Productive cough [Unknown]
  - Treatment noncompliance [Unknown]
  - Ventricular tachycardia [Unknown]
  - Anxiety [Unknown]
  - Asthenia [Unknown]
  - Blood pressure increased [Unknown]
  - Chest discomfort [Unknown]
  - Dyspnoea [Unknown]
